FAERS Safety Report 16308385 (Version 1)
Quarter: 2019Q2

REPORT INFORMATION
  Report Type: Spontaneous
  Country: US (occurrence: US)
  Receive Date: 20190514
  Receipt Date: 20190514
  Transmission Date: 20190711
  Serious: Yes (Other)
  Sender: FDA-Public Use
  Company Number: US-RECKITT BENCKISER HEALTHCARE INT LIMITED-RB-85080-2019

PATIENT
  Age: 2 Year
  Sex: Male

DRUGS (6)
  1. ACETYLCYSTEINE. [Suspect]
     Active Substance: ACETYLCYSTEINE
     Indication: HEPATOBLASTOMA
     Dosage: TOOK 4 TIMES CYCLICAL FREQUENCY
     Route: 065
  2. IFOSFAMIDE. [Concomitant]
     Active Substance: IFOSFAMIDE
     Indication: PRODUCT USED FOR UNKNOWN INDICATION
     Dosage: TOOK 12 CYCLES EVERY 4 WEEKS
     Route: 065
  3. ETOPOSIDE. [Concomitant]
     Active Substance: ETOPOSIDE
     Indication: PRODUCT USED FOR UNKNOWN INDICATION
     Dosage: TOOK 12 CYCLES EVERY 4 WEEKS
     Route: 065
  4. PARACETAMOL [Suspect]
     Active Substance: ACETAMINOPHEN
     Indication: HEPATOBLASTOMA
     Dosage: 30 GRAM PER SQUARE METRE AY CYCLICAL FREQUENCY, HIGH DOSE ACETAMINOPHEN (30G/M2); UNKNOWN
     Route: 065
  5. CISPLATIN. [Concomitant]
     Active Substance: CISPLATIN
     Indication: HEPATOBLASTOMA
     Dosage: TOOK 4 TIMES CYCLICAL FREQUENCY
     Route: 065
  6. CARBOPLATIN. [Concomitant]
     Active Substance: CARBOPLATIN
     Indication: PRODUCT USED FOR UNKNOWN INDICATION
     Dosage: TOOK 12 CYCLES EVERY 4 WEEKS
     Route: 065

REACTIONS (5)
  - Product use in unapproved indication [Unknown]
  - Body height below normal [Unknown]
  - Deafness [Unknown]
  - Hepatic enzyme increased [Unknown]
  - Toxicity to various agents [Unknown]
